FAERS Safety Report 16705167 (Version 4)
Quarter: 2019Q4

REPORT INFORMATION
  Report Type: Report from Study
  Country: JP (occurrence: JP)
  Receive Date: 20190815
  Receipt Date: 20191022
  Transmission Date: 20200122
  Serious: Yes (Disabling)
  Sender: FDA-Public Use
  Company Number: JP-BEH-2019105510

PATIENT
  Age: 86 Year
  Sex: Male
  Weight: 55 kg

DRUGS (9)
  1. KAYTWO N [Concomitant]
     Active Substance: MENATETRENONE
     Indication: PROCOAGULANT THERAPY
     Dosage: 20 MILLILITER, QD
     Route: 065
     Dates: start: 20171124, end: 20171124
  2. WARFARIN [Concomitant]
     Active Substance: WARFARIN
     Indication: ATRIAL FIBRILLATION
     Dosage: 2 MILLIGRAM, QD
     Route: 048
     Dates: end: 20171122
  3. PLETAAL [Concomitant]
     Active Substance: CILOSTAZOL
     Indication: VASCULAR GRAFT
     Dosage: UNK
     Route: 048
     Dates: end: 20171122
  4. BERIPLEX P/N [Suspect]
     Active Substance: COAGULATION FACTOR IX HUMAN\COAGULATION FACTOR VII HUMAN\COAGULATION FACTOR X HUMAN\PROTEIN C\PROTEIN S HUMAN\PROTHROMBIN
     Indication: SURGERY
     Dosage: 2500 INTERNATIONAL UNIT, TOT
     Route: 042
     Dates: start: 20171122
  5. BERIPLEX P/N [Suspect]
     Active Substance: COAGULATION FACTOR IX HUMAN\COAGULATION FACTOR VII HUMAN\COAGULATION FACTOR X HUMAN\PROTEIN C\PROTEIN S HUMAN\PROTHROMBIN
     Indication: SURGERY
     Dosage: 2500 INTERNATIONAL UNIT, TOT
     Route: 042
     Dates: start: 20171122
  6. BERIPLEX P/N [Suspect]
     Active Substance: COAGULATION FACTOR IX HUMAN\COAGULATION FACTOR VII HUMAN\COAGULATION FACTOR X HUMAN\PROTEIN C\PROTEIN S HUMAN\PROTHROMBIN
     Indication: EMERGENCY CARE
     Dosage: UNK
     Route: 042
  7. BERIPLEX P/N [Suspect]
     Active Substance: COAGULATION FACTOR IX HUMAN\COAGULATION FACTOR VII HUMAN\COAGULATION FACTOR X HUMAN\PROTEIN C\PROTEIN S HUMAN\PROTHROMBIN
     Indication: EMERGENCY CARE
     Dosage: UNK
     Route: 042
  8. PLETAAL [Concomitant]
     Active Substance: CILOSTAZOL
     Indication: AORTIC ANEURYSM
  9. WARFARIN [Concomitant]
     Active Substance: WARFARIN
     Indication: PROPHYLAXIS

REACTIONS (1)
  - Embolic stroke [Recovered/Resolved with Sequelae]

NARRATIVE: CASE EVENT DATE: 20171129
